FAERS Safety Report 18734137 (Version 1)
Quarter: 2021Q1

REPORT INFORMATION
  Report Type: Spontaneous
  Country: US (occurrence: US)
  Receive Date: 20210113
  Receipt Date: 20210113
  Transmission Date: 20210419
  Serious: Yes (Other)
  Sender: FDA-Public Use
  Company Number: US-AMGEN-USA-20200504988

PATIENT
  Age: 76 Year
  Sex: Female

DRUGS (1)
  1. OTEZLA [Suspect]
     Active Substance: APREMILAST
     Indication: PSORIATIC ARTHROPATHY
     Dosage: 60 MILLIGRAM, BID
     Route: 048
     Dates: start: 20180515

REACTIONS (3)
  - Foot fracture [Not Recovered/Not Resolved]
  - Product dose omission issue [Unknown]
  - Psoriatic arthropathy [Not Recovered/Not Resolved]

NARRATIVE: CASE EVENT DATE: 20200514
